FAERS Safety Report 23940509 (Version 2)
Quarter: 2024Q3

REPORT INFORMATION
  Report Type: Spontaneous
  Country: PT (occurrence: PT)
  Receive Date: 20240605
  Receipt Date: 20240702
  Transmission Date: 20241016
  Serious: Yes (Death, Other)
  Sender: ASTELLAS
  Company Number: PT-ASTELLAS-2024US015865

PATIENT
  Age: 49 Year
  Sex: Female

DRUGS (2)
  1. ENFORTUMAB VEDOTIN [Suspect]
     Active Substance: ENFORTUMAB VEDOTIN
     Indication: Transitional cell carcinoma
     Dosage: 1.25 MG/KG, CYCLIC (D1, D8, D15, 28-DAY CYCLES)
     Route: 042
     Dates: start: 20221228
  2. ENFORTUMAB VEDOTIN [Suspect]
     Active Substance: ENFORTUMAB VEDOTIN
     Route: 042
     Dates: start: 20230125

REACTIONS (6)
  - Malignant neoplasm progression [Fatal]
  - Asthenia [Recovered/Resolved with Sequelae]
  - Decreased appetite [Recovered/Resolved with Sequelae]
  - Vomiting [Recovered/Resolved with Sequelae]
  - Nausea [Recovered/Resolved with Sequelae]
  - Therapy partial responder [Unknown]

NARRATIVE: CASE EVENT DATE: 20221228
